FAERS Safety Report 24693027 (Version 4)
Quarter: 2025Q1

REPORT INFORMATION
  Report Type: Report from Study
  Country: CO (occurrence: CO)
  Receive Date: 20241203
  Receipt Date: 20250209
  Transmission Date: 20250409
  Serious: Yes (Hospitalization)
  Sender: MYLAN
  Company Number: CO-MYLANLABS-2024M1108522

PATIENT
  Age: 9 Year
  Sex: Female
  Weight: 18 kg

DRUGS (5)
  1. CYSTAGON [Suspect]
     Active Substance: CYSTEAMINE BITARTRATE
     Indication: Cystinosis
     Dosage: 450 MILLIGRAM, Q6H (3 CAPSULES EVERY 6 HOURS, FOR A TOTAL OF 12 CAPSULES A DAY)
     Route: 048
     Dates: start: 20170202
  2. CYSTEAMINE HYDROCHLORIDE [Suspect]
     Active Substance: CYSTEAMINE HYDROCHLORIDE
     Indication: Cystinosis
     Dosage: 1 GTT DROPS, Q6H (1 DROP IN EACH EYE, EVERY 6 HOURS)
     Route: 047
     Dates: start: 20170202
  3. THIAMINE [Concomitant]
     Active Substance: THIAMINE
     Indication: Vitamin supplementation
     Dosage: 300 MILLIGRAM, QD (A DAY)
     Route: 065
  4. CALCIUM CARBONATE [Concomitant]
     Active Substance: CALCIUM CARBONATE
     Indication: Vitamin supplementation
     Dosage: UNK, Q6H (600/ 2 TABLETS, EVERY 6 HOURS)
     Route: 065
  5. POTASSIUM GLUCONATE [Concomitant]
     Active Substance: POTASSIUM GLUCONATE
     Indication: Vitamin supplementation
     Dosage: 20 MILLILITER, Q8H (EVERY 8 HOURS)
     Route: 065

REACTIONS (5)
  - Osteotomy [Recovering/Resolving]
  - Hypocalcaemia [Recovered/Resolved]
  - Hypokalaemia [Recovered/Resolved]
  - Amino acid level increased [Unknown]
  - Overdose [Unknown]

NARRATIVE: CASE EVENT DATE: 20170202
